FAERS Safety Report 24009138 (Version 1)
Quarter: 2024Q2

REPORT INFORMATION
  Report Type: Spontaneous
  Country: US (occurrence: US)
  Receive Date: 20240625
  Receipt Date: 20240625
  Transmission Date: 20240716
  Serious: No
  Sender: FDA-Public Use
  Company Number: BANN2400022

PATIENT

DRUGS (3)
  1. BAFIERTAM [Suspect]
     Active Substance: MONOMETHYL FUMARATE
     Indication: Multiple sclerosis
     Dosage: 95 MILLIGRAM, BID
     Route: 048
     Dates: start: 202312
  2. BAFIERTAM [Suspect]
     Active Substance: MONOMETHYL FUMARATE
     Dosage: 190 MILLIGRAM, BID
     Route: 048
     Dates: end: 20240202
  3. COPAXONE [Concomitant]
     Active Substance: GLATIRAMER ACETATE
     Indication: Product used for unknown indication
     Dosage: UNK, UNK
     Route: 065

REACTIONS (1)
  - Flushing [Not Recovered/Not Resolved]

NARRATIVE: CASE EVENT DATE: 20231201
